FAERS Safety Report 9714282 (Version 2)
Quarter: 2013Q4

REPORT INFORMATION
  Report Type: Spontaneous
  Country: US (occurrence: US)
  Receive Date: 20131126
  Receipt Date: 20131126
  Transmission Date: 20140711
  Serious: No
  Sender: FDA-Public Use
  Company Number: US-GILEAD-2008-0018245

PATIENT
  Sex: Female
  Weight: 61.23 kg

DRUGS (13)
  1. LETAIRIS [Suspect]
     Indication: PULMONARY ARTERIAL HYPERTENSION
     Route: 048
     Dates: start: 20080910
  2. ZOCOR [Concomitant]
     Dosage: AS DIRECTED
     Route: 048
  3. MULTIVITAMIN [Concomitant]
     Dosage: AS DIRECTED
  4. AMBIEN [Concomitant]
     Dosage: AS DIRECTED
     Route: 048
  5. LEVOTHYROXINE [Concomitant]
     Dosage: AS DIRECTED
     Route: 048
  6. PROCARDIA XL [Concomitant]
     Dosage: AS DIRECTED
     Route: 048
  7. VIAGRA [Concomitant]
     Dosage: AS DIRECTED
     Route: 048
  8. CALCIUM [Concomitant]
     Dosage: AS DIRECTED
     Route: 048
  9. LEXAPRO [Concomitant]
     Dosage: AS DIRECTED
     Route: 048
  10. VITAMIN C [Concomitant]
     Dosage: AS DIRECTED
     Route: 048
  11. VITAMIN D [Concomitant]
     Dosage: AS DIRECTED
     Route: 048
  12. FLAXSEED OIL [Concomitant]
     Dosage: AS DIRECTED
     Route: 048
  13. VITAMIN B12 [Concomitant]
     Dosage: AS DIRECTED
     Route: 048

REACTIONS (2)
  - Faeces discoloured [Unknown]
  - Constipation [Unknown]
